FAERS Safety Report 6518697-9 (Version None)
Quarter: 2009Q4

REPORT INFORMATION
  Report Type: 
  Country: None (occurrence: None)
  Receive Date: 20091228
  Receipt Date: 20091222
  Transmission Date: 20100525
  Serious: Yes (Congenital Anomaly)
  Sender: FDA-Public Use
  Company Number: CN-ROCHE-675947

PATIENT
  Sex: Male

DRUGS (1)
  1. ROCEPHIN [Suspect]
     Dates: start: 20090801

REACTIONS (1)
  - DIAPHRAGMATIC APLASIA [None]
